FAERS Safety Report 18365936 (Version 1)
Quarter: 2020Q4

REPORT INFORMATION
  Report Type: Other
  Country: US (occurrence: US)
  Receive Date: 20201009
  Receipt Date: 20201009
  Transmission Date: 20210114
  Serious: Yes (Hospitalization, Other)
  Sender: FDA-Public Use
  Company Number: US-INVATECH-000023

PATIENT
  Age: 88 Year
  Sex: Female

DRUGS (4)
  1. PYRIDOSTIGMINE/PYRIDOSTIGMINE BROMIDE [Suspect]
     Active Substance: PYRIDOSTIGMINE
     Indication: MYASTHENIA GRAVIS
     Dosage: FOR EVERY SIX HOURS
  2. PREDNISONE. [Concomitant]
     Active Substance: PREDNISONE
     Indication: MYASTHENIA GRAVIS
     Dosage: FOR EVERY SIX HOURS
  3. PREDNISONE. [Concomitant]
     Active Substance: PREDNISONE
     Indication: PARANEOPLASTIC SYNDROME
     Dosage: FOR EVERY SIX HOURS
  4. PYRIDOSTIGMINE/PYRIDOSTIGMINE BROMIDE [Suspect]
     Active Substance: PYRIDOSTIGMINE
     Indication: PARANEOPLASTIC SYNDROME
     Dosage: FOR EVERY SIX HOURS

REACTIONS (1)
  - Myocardial infarction [Unknown]
